FAERS Safety Report 5331431-3 (Version None)
Quarter: 2007Q2

REPORT INFORMATION
  Report Type: 
  Country: None (occurrence: None)
  Receive Date: 20070522
  Receipt Date: 20070511
  Transmission Date: 20071010
  Serious: Yes (Hospitalization)
  Sender: FDA-Public Use
  Company Number: NL-ASTRAZENECA-2007AC00851

PATIENT
  Age: 23168 Day
  Sex: Female
  Weight: 80 kg

DRUGS (4)
  1. NOLVADEX [Suspect]
     Indication: BREAST CANCER
     Route: 048
     Dates: start: 20010419, end: 20060424
  2. LIPITOR [Concomitant]
     Dates: start: 20010131
  3. HUMULINE [Concomitant]
     Dosage: 30/70 INJ 100 IE/ML
     Dates: start: 20010302, end: 20060707
  4. METFORMINI [Concomitant]
     Dates: start: 19990701

REACTIONS (1)
  - PALPITATIONS [None]
